FAERS Safety Report 18541770 (Version 18)
Quarter: 2024Q3

REPORT INFORMATION
  Report Type: Spontaneous
  Country: DE (occurrence: DE)
  Receive Date: 20201124
  Receipt Date: 20240727
  Transmission Date: 20241016
  Serious: Yes (Hospitalization)
  Sender: BIOGEN
  Company Number: None

PATIENT
  Age: 70 Year
  Sex: Male

DRUGS (19)
  1. DALFAMPRIDINE [Suspect]
     Active Substance: DALFAMPRIDINE
     Indication: Product used for unknown indication
     Dosage: 1-0-1
     Route: 050
  2. DALFAMPRIDINE [Suspect]
     Active Substance: DALFAMPRIDINE
     Dosage: 1-0-1
     Route: 050
  3. OCREVUS [Suspect]
     Active Substance: OCRELIZUMAB
     Indication: Primary progressive multiple sclerosis
     Route: 050
     Dates: start: 20180613
  4. OCREVUS [Suspect]
     Active Substance: OCRELIZUMAB
     Route: 050
     Dates: start: 20181126
  5. OCREVUS [Suspect]
     Active Substance: OCRELIZUMAB
     Dosage: 2ND MAINTENANCE DOSE
     Route: 050
     Dates: start: 201905
  6. OCREVUS [Suspect]
     Active Substance: OCRELIZUMAB
     Dosage: 2ND MAINTENANCE DOSE
     Route: 050
     Dates: start: 20190513
  7. OCREVUS [Suspect]
     Active Substance: OCRELIZUMAB
     Route: 050
     Dates: start: 202004
  8. OCREVUS [Suspect]
     Active Substance: OCRELIZUMAB
     Dosage: THEN 600 MG ONCE IN 261 DAYS
     Route: 050
     Dates: start: 20200602
  9. OCREVUS [Suspect]
     Active Substance: OCRELIZUMAB
     Route: 050
     Dates: start: 202010
  10. OCREVUS [Suspect]
     Active Substance: OCRELIZUMAB
     Route: 050
  11. OCREVUS [Suspect]
     Active Substance: OCRELIZUMAB
     Route: 050
     Dates: start: 20211027
  12. OCREVUS [Suspect]
     Active Substance: OCRELIZUMAB
     Dosage: SUBSEQUENT DOSE ON 13/APR/2023
     Route: 050
  13. DOXEPIN [Suspect]
     Active Substance: DOXEPIN
     Indication: Product used for unknown indication
     Dosage: 0-0-2
     Route: 050
  14. DOXEPIN [Suspect]
     Active Substance: DOXEPIN
     Route: 050
  15. DOXEPIN [Suspect]
     Active Substance: DOXEPIN
     Route: 050
  16. TAMSULOSIN [Concomitant]
     Active Substance: TAMSULOSIN
     Indication: Product used for unknown indication
     Route: 050
  17. AMANTADINE [Concomitant]
     Active Substance: AMANTADINE
     Indication: Product used for unknown indication
     Route: 050
  18. NEUPRO [Concomitant]
     Active Substance: ROTIGOTINE
     Indication: Product used for unknown indication
     Dosage: FREQUENCY 24 HRS, PATCH
     Route: 050
  19. LEVODOPA [Concomitant]
     Active Substance: LEVODOPA
     Indication: Product used for unknown indication
     Route: 050

REACTIONS (33)
  - Gallbladder cancer [Recovered/Resolved]
  - Bladder cancer [Not Recovered/Not Resolved]
  - Inguinal hernia [Recovered/Resolved]
  - Groin pain [Not Recovered/Not Resolved]
  - Swelling [Not Recovered/Not Resolved]
  - Pain in extremity [Recovered/Resolved]
  - Muscular weakness [Recovered/Resolved]
  - Initial insomnia [Recovered/Resolved]
  - Rib fracture [Recovered/Resolved]
  - Fall [Unknown]
  - Contusion [Recovered/Resolved]
  - Gait disturbance [Not Recovered/Not Resolved]
  - Muscular weakness [Not Recovered/Not Resolved]
  - Fatigue [Not Recovered/Not Resolved]
  - Chest pain [Not Recovered/Not Resolved]
  - Wound [Recovered/Resolved]
  - Pain in extremity [Recovered/Resolved]
  - Fall [Unknown]
  - Movement disorder [Recovered/Resolved]
  - Muscle spasms [Recovered/Resolved]
  - Nasal congestion [Recovered/Resolved]
  - Dry mouth [Recovered/Resolved]
  - Middle insomnia [Recovered/Resolved]
  - Rhinorrhoea [Recovered/Resolved]
  - Arthropod bite [Not Recovered/Not Resolved]
  - Muscular weakness [Recovered/Resolved]
  - Arthralgia [Recovered/Resolved]
  - Balance disorder [Not Recovered/Not Resolved]
  - Balance disorder [Recovered/Resolved]
  - Headache [Recovered/Resolved]
  - Back pain [Recovered/Resolved]
  - Defaecation urgency [Not Recovered/Not Resolved]
  - Fluid retention [Not Recovered/Not Resolved]

NARRATIVE: CASE EVENT DATE: 20180613
